FAERS Safety Report 9001537 (Version 2)
Quarter: 2013Q1

REPORT INFORMATION
  Report Type: Spontaneous
  Country: GB (occurrence: GB)
  Receive Date: 20130107
  Receipt Date: 20130108
  Transmission Date: 20140127
  Serious: Yes (Other)
  Sender: FDA-Public Use
  Company Number: GB-US-EMD SERONO, INC.-7185397

PATIENT
  Sex: Female

DRUGS (2)
  1. REBIF [Suspect]
     Indication: PRODUCT USED FOR UNKNOWN INDICATION
     Dates: start: 200509, end: 200806
  2. REBIF [Suspect]
     Dates: start: 200904, end: 201204

REACTIONS (3)
  - Diabetes mellitus [Recovering/Resolving]
  - Cerebrovascular accident [Recovering/Resolving]
  - Dermatitis [Recovered/Resolved]
